FAERS Safety Report 6428374-0 (Version None)
Quarter: 2009Q4

REPORT INFORMATION
  Report Type: 
  Country: None (occurrence: None)
  Receive Date: 20091102
  Receipt Date: 20091016
  Transmission Date: 20100525
  Serious: Yes (Hospitalization)
  Sender: FDA-Public Use
  Company Number: JPI-P-008853

PATIENT
  Age: 54 Year
  Sex: Male

DRUGS (17)
  1. XYREM [Suspect]
     Indication: CATAPLEXY
     Dosage: SEE IMAGE
     Route: 048
     Dates: start: 20090407, end: 20090420
  2. XYREM [Suspect]
     Indication: CATAPLEXY
     Dosage: SEE IMAGE
     Route: 048
     Dates: start: 20090421, end: 20090514
  3. XYREM [Suspect]
     Indication: CATAPLEXY
     Dosage: SEE IMAGE
     Route: 048
     Dates: start: 20090515, end: 20090609
  4. XYREM [Suspect]
     Indication: CATAPLEXY
     Dosage: SEE IMAGE
     Route: 048
     Dates: start: 20090610, end: 20090702
  5. XYREM [Suspect]
     Indication: CATAPLEXY
     Dosage: SEE IMAGE
     Route: 048
     Dates: start: 20090703, end: 20091009
  6. XYREM [Suspect]
     Indication: CATAPLEXY
     Dosage: SEE IMAGE
     Route: 048
     Dates: start: 20091010
  7. HYDROCHLOROTHIAZIDE [Concomitant]
  8. AMLODIPINE BESYLATE [Concomitant]
  9. CANDESARTAN CILEXETIL [Concomitant]
  10. ACETYLSALICYLIC ACID [Concomitant]
  11. INSULIN [Concomitant]
  12. SULFASALAZINE [Concomitant]
  13. NAPROXEN [Concomitant]
  14. ROSUVASTATIN CALCIUM [Concomitant]
  15. FLUTICASONE PROPIONATE [Concomitant]
  16. METHYLPENIDATE HYDROCHLORIDE [Concomitant]
  17. ESOMEPRAZOLE MAGNESIUM [Concomitant]

REACTIONS (12)
  - AMNESIA [None]
  - BLOOD PRESSURE INCREASED [None]
  - CATAPLEXY [None]
  - DIARRHOEA [None]
  - DIZZINESS [None]
  - DYSPNOEA [None]
  - FAECAL INCONTINENCE [None]
  - GAIT DISTURBANCE [None]
  - HYPERHIDROSIS [None]
  - MUSCLE SPASMS [None]
  - SOMNAMBULISM [None]
  - SOMNOLENCE [None]
